FAERS Safety Report 4318938-2 (Version None)
Quarter: 2004Q1

REPORT INFORMATION
  Report Type: 
  Country: None (occurrence: None)
  Receive Date: 20040316
  Receipt Date: 20040304
  Transmission Date: 20041129
  Serious: Yes (Hospitalization, Other)
  Sender: FDA-Public Use
  Company Number: HQWYE573004MAR04

PATIENT
  Age: 66 Year
  Sex: Female

DRUGS (8)
  1. AMIODARONE HCL [Suspect]
     Indication: ATRIAL FIBRILLATION
     Dosage: 200 MG 1X PER 1 DAY
     Route: 048
     Dates: start: 20031210, end: 20040107
  2. WARFARIN SODIUM [Concomitant]
  3. FUROSEMIDE [Concomitant]
  4. SPIRONOLACTONE [Concomitant]
  5. DIGOXIN [Concomitant]
  6. OMEPRAZOLE [Concomitant]
  7. DIAZEPAM [Concomitant]
  8. LACTULOSE [Concomitant]

REACTIONS (2)
  - CHOLESTASIS [None]
  - HEPATITIS C POSITIVE [None]
